FAERS Safety Report 9612021 (Version 1)
Quarter: 2013Q4

REPORT INFORMATION
  Report Type: Spontaneous
  Country: BR (occurrence: BR)
  Receive Date: 20131010
  Receipt Date: 20131010
  Transmission Date: 20140711
  Serious: Yes (Other)
  Sender: FDA-Public Use
  Company Number: BR-SA-2013SA098660

PATIENT
  Age: 72 Year
  Sex: Female

DRUGS (2)
  1. TAXOTERE [Suspect]
     Indication: PRODUCT USED FOR UNKNOWN INDICATION
     Dosage: STRENGTH: 80MG + 20MG?DOSE: COMBINED DOSE
     Route: 042
     Dates: start: 20130916
  2. TAXOTERE [Suspect]
     Indication: PRODUCT USED FOR UNKNOWN INDICATION
     Dosage: STRENGTH: 80MG + 20MG?DOSE: COMBINED DOSE
     Route: 042
     Dates: start: 20130916

REACTIONS (2)
  - Hyperaemia [Recovered/Resolved]
  - Feeling hot [Recovered/Resolved]
